FAERS Safety Report 15081011 (Version 2)
Quarter: 2018Q4

REPORT INFORMATION
  Report Type: Spontaneous
  Country: GB (occurrence: GB)
  Receive Date: 20180628
  Receipt Date: 20181023
  Transmission Date: 20190204
  Serious: Yes (Other)
  Sender: FDA-Public Use
  Company Number: GB-SUN PHARMACEUTICAL INDUSTRIES LTD-2018RR-176897

PATIENT

DRUGS (2)
  1. RIFAMPICIN [Concomitant]
     Active Substance: RIFAMPIN
     Indication: ARTHRITIS BACTERIAL
     Dosage: 4 WEEKS.
     Route: 048
  2. CLARITHROMYCIN. [Suspect]
     Active Substance: CLARITHROMYCIN
     Indication: ARTHRITIS BACTERIAL
     Dosage: 4 WEEK TREATMENT
     Route: 048

REACTIONS (2)
  - Anosmia [Not Recovered/Not Resolved]
  - Ageusia [Not Recovered/Not Resolved]

NARRATIVE: CASE EVENT DATE: 20180116
